FAERS Safety Report 8964646 (Version 1)
Quarter: 2012Q4

REPORT INFORMATION
  Report Type: 
  Country: TR (occurrence: TR)
  Receive Date: 20121213
  Receipt Date: 20121213
  Transmission Date: 20130627
  Serious: Yes (Hospitalization, Other)
  Sender: FDA-Public Use
  Company Number: TR-ABBOTT-12P-161-1018381-00

PATIENT
  Age: 32 Year
  Sex: Female

DRUGS (3)
  1. HUMIRA [Suspect]
     Indication: CROHN^S DISEASE
     Route: 058
     Dates: start: 2009
  2. SALOFALK [Concomitant]
     Indication: CROHN^S DISEASE
  3. SALOFALK [Concomitant]
     Route: 054

REACTIONS (6)
  - Blood phosphorus decreased [Recovered/Resolved]
  - Cystitis escherichia [Recovered/Resolved]
  - Peritoneal tuberculosis [Not Recovered/Not Resolved]
  - Crohn^s disease [Not Recovered/Not Resolved]
  - Vomiting [Recovered/Resolved]
  - Cough [Recovered/Resolved]
